FAERS Safety Report 5243245-3 (Version None)
Quarter: 2007Q1

REPORT INFORMATION
  Report Type: 
  Country: None (occurrence: None)
  Receive Date: 20070221
  Receipt Date: 20070211
  Transmission Date: 20070707
  Serious: Yes (Disabling)
  Sender: FDA-Public Use
  Company Number: AU-PFIZER INC-2007000790

PATIENT
  Sex: Female
  Weight: 69.5 kg

DRUGS (3)
  1. SUTENT [Suspect]
     Route: 048
  2. NOTEN [Concomitant]
     Route: 048
  3. ACIMAX [Concomitant]
     Route: 048

REACTIONS (7)
  - ANOREXIA [None]
  - DIARRHOEA [None]
  - FATIGUE [None]
  - LETHARGY [None]
  - MALAISE [None]
  - NAUSEA [None]
  - SKIN DISCOLOURATION [None]
